FAERS Safety Report 6972570-0 (Version None)
Quarter: 2010Q3

REPORT INFORMATION
  Report Type: 
  Country: None (occurrence: None)
  Receive Date: 20100907
  Receipt Date: 20100825
  Transmission Date: 20110219
  Serious: Yes (Hospitalization, Other)
  Sender: FDA-Public Use
  Company Number: 2010AC000498

PATIENT
  Age: 73 Year
  Sex: Male

DRUGS (38)
  1. DIGOXIN [Suspect]
     Indication: PRODUCT USED FOR UNKNOWN INDICATION
     Dosage: 0.25 MG;1X;PO
     Route: 048
     Dates: start: 20060215, end: 20060215
  2. DIGOXIN [Suspect]
     Indication: PRODUCT USED FOR UNKNOWN INDICATION
     Dosage: 0.125 MG;QD;PO
     Route: 048
     Dates: start: 20060215, end: 20060802
  3. DIGOXIN [Suspect]
     Indication: PRODUCT USED FOR UNKNOWN INDICATION
     Dosage: 0.125 MG;QD;PO
     Route: 048
     Dates: start: 20060906, end: 20080601
  4. GLIPIZIDE [Concomitant]
  5. DARVOCET [Concomitant]
  6. ALTACE [Concomitant]
  7. VICODIN [Concomitant]
  8. NITROGLYCERIN [Concomitant]
  9. NEURONTIN [Concomitant]
  10. ZANTAC [Concomitant]
  11. ELAVIL [Concomitant]
  12. FLEXERIL [Concomitant]
  13. PROCARDIA [Concomitant]
  14. AMANTADINE [Concomitant]
  15. LISINOPRIL [Concomitant]
  16. ASPIRIN [Concomitant]
  17. AMITRIPTYLINE HCL [Concomitant]
  18. TOPROL-XL [Concomitant]
  19. ASPIRIN [Concomitant]
  20. GLYBURIDE [Concomitant]
  21. LOVASTATIN [Concomitant]
  22. GLUCOPHAGE [Concomitant]
  23. PLAVIX [Concomitant]
  24. GABAPENTIN [Concomitant]
  25. METOPROLOL TARTRATE [Concomitant]
  26. FERROUS SULFATE TAB [Concomitant]
  27. FUROSEMIDE [Concomitant]
  28. NIFEDIPINE [Concomitant]
  29. METFORMIN [Concomitant]
  30. RANITIDINE [Concomitant]
  31. NITROGLYCERIN [Concomitant]
  32. CARVEDILOL [Concomitant]
  33. ISOSORBIDE [Concomitant]
  34. CLONIDINE [Concomitant]
  35. IMDUR [Concomitant]
  36. POTASSIUM [Concomitant]
  37. VITAMINS [Concomitant]
  38. CRESTOR [Concomitant]

REACTIONS (16)
  - ARTHRITIS [None]
  - BLOOD CREATININE INCREASED [None]
  - BLOOD UREA INCREASED [None]
  - CHEST PAIN [None]
  - DIABETES MELLITUS INADEQUATE CONTROL [None]
  - DYSPNOEA EXERTIONAL [None]
  - ELECTROCARDIOGRAM QT PROLONGED [None]
  - FATIGUE [None]
  - HYPERTENSIVE CRISIS [None]
  - INTERMITTENT CLAUDICATION [None]
  - OEDEMA PERIPHERAL [None]
  - ORTHOPNOEA [None]
  - POST PROCEDURAL COMPLICATION [None]
  - RENAL ARTERY STENOSIS [None]
  - SINUS BRADYCARDIA [None]
  - SUPRAVENTRICULAR EXTRASYSTOLES [None]
